FAERS Safety Report 11011714 (Version 1)
Quarter: 2015Q2

REPORT INFORMATION
  Report Type: Spontaneous
  Country: FR (occurrence: FR)
  Receive Date: 20150410
  Receipt Date: 20150410
  Transmission Date: 20150821
  Serious: Yes (Other)
  Sender: FDA-Public Use
  Company Number: FR-ALLERGAN-1506342US

PATIENT
  Sex: Male

DRUGS (1)
  1. BOTOX [Suspect]
     Active Substance: ONABOTULINUMTOXINA
     Indication: LOWER URINARY TRACT SYMPTOMS
     Dosage: 200 UNITS, SINGLE
     Route: 050

REACTIONS (2)
  - Off label use [Unknown]
  - Prostatitis [Unknown]
